FAERS Safety Report 4306195-2 (Version None)
Quarter: 2004Q1

REPORT INFORMATION
  Report Type: 
  Country: None (occurrence: None)
  Receive Date: 20040225
  Receipt Date: 20030326
  Transmission Date: 20041129
  Serious: No
  Sender: FDA-Public Use
  Company Number: US-BRISTOL-MYERS SQUIBB COMPANY-12222667

PATIENT
  Sex: Male

DRUGS (1)
  1. EXCEDRIN ES TABS [Suspect]
     Indication: HEADACHE
     Dates: start: 20030326

REACTIONS (2)
  - ACCIDENTAL EXPOSURE [None]
  - DYSPNOEA [None]
